FAERS Safety Report 8059915-8 (Version None)
Quarter: 2012Q1

REPORT INFORMATION
  Report Type: 
  Country: None (occurrence: None)
  Receive Date: 20120120
  Receipt Date: 20120119
  Transmission Date: 20120608
  Serious: Yes (Hospitalization, Other)
  Sender: FDA-Public Use
  Company Number: US-BAYER-2012-006167

PATIENT
  Age: 63 Year
  Sex: Female

DRUGS (2)
  1. INTERFERON BETA-1B [Suspect]
     Indication: MULTIPLE SCLEROSIS
     Dosage: UNK
     Dates: start: 19950525, end: 20071201
  2. INTERFERON BETA-1B [Suspect]
     Dosage: 8 MIU, UNK
     Route: 058
     Dates: start: 20080215, end: 20120108

REACTIONS (5)
  - OROPHARYNGEAL BLISTERING [None]
  - PYREXIA [None]
  - DYSPNOEA [None]
  - NAUSEA [None]
  - MUSCLE SPASMS [None]
